FAERS Safety Report 20328894 (Version 1)
Quarter: 2022Q1

REPORT INFORMATION
  Report Type: Spontaneous
  Country: CN (occurrence: CN)
  Receive Date: 20220112
  Receipt Date: 20220112
  Transmission Date: 20220424
  Serious: Yes (Other)
  Sender: FDA-Public Use
  Company Number: CN-GLAXOSMITHKLINE-CNCH2022APC001577

PATIENT
  Age: 50 Year
  Sex: Female
  Weight: 55 kg

DRUGS (4)
  1. IBUPROFEN [Suspect]
     Active Substance: IBUPROFEN
     Indication: Cardiovascular disorder
     Dosage: 0.3 G, BID
     Route: 048
     Dates: start: 20211122, end: 20211128
  2. IBUPROFEN [Suspect]
     Active Substance: IBUPROFEN
     Indication: Pain
  3. IMRECOXIB [Suspect]
     Active Substance: IMRECOXIB
     Indication: Cardiovascular disorder
     Dosage: 0.1 G, BID
     Route: 048
     Dates: start: 20211126, end: 20211202
  4. IMRECOXIB [Suspect]
     Active Substance: IMRECOXIB
     Indication: Pain

REACTIONS (10)
  - Lower gastrointestinal haemorrhage [Recovered/Resolved]
  - Haematochezia [Recovered/Resolved]
  - Large intestinal ulcer [Unknown]
  - Intestinal ischaemia [Unknown]
  - Gastritis erosive [Unknown]
  - Abnormal faeces [Unknown]
  - Dyschezia [Unknown]
  - Proctitis [Unknown]
  - Chronic gastritis [Unknown]
  - Off label use [Unknown]

NARRATIVE: CASE EVENT DATE: 20211202
